FAERS Safety Report 7456740-3 (Version None)
Quarter: 2011Q2

REPORT INFORMATION
  Report Type: 
  Country: None (occurrence: None)
  Receive Date: 20110503
  Receipt Date: 20110426
  Transmission Date: 20111010
  Serious: Yes (Hospitalization)
  Sender: FDA-Public Use
  Company Number: US-GILEAD-2010-0034059

PATIENT
  Sex: Female

DRUGS (22)
  1. MIRALAX [Concomitant]
  2. PLAQUENIL [Concomitant]
  3. ATIVAN [Concomitant]
  4. IRON [Concomitant]
  5. NORCO [Concomitant]
     Indication: PAIN
  6. MELATONIN [Concomitant]
  7. DELTASONE                          /00016001/ [Concomitant]
  8. ZOFRAN [Concomitant]
     Indication: NAUSEA
  9. FOSAMAX [Concomitant]
  10. OSCAL D                            /00944201/ [Concomitant]
  11. LETAIRIS [Suspect]
     Indication: PULMONARY ARTERIAL HYPERTENSION
     Route: 048
     Dates: start: 20070924
  12. PREVACID [Concomitant]
  13. COUMADIN [Concomitant]
  14. CYMBALTA [Concomitant]
  15. NAPROSYN [Concomitant]
  16. FLOLAN [Concomitant]
  17. VALIUM [Concomitant]
     Indication: INSOMNIA
  18. COLACE [Concomitant]
  19. CHOLECALCIFEROL [Concomitant]
  20. AMBIEN [Concomitant]
     Indication: INSOMNIA
  21. VALIUM [Concomitant]
     Indication: ANXIETY
  22. CLARITIN                           /00917501/ [Concomitant]

REACTIONS (3)
  - STREPTOCOCCAL INFECTION [None]
  - RESPIRATORY TRACT INFECTION [None]
  - CHEST PAIN [None]
